FAERS Safety Report 4771701-0 (Version None)
Quarter: 2005Q3

REPORT INFORMATION
  Report Type: 
  Country: None (occurrence: None)
  Receive Date: 20050916
  Receipt Date: 20050907
  Transmission Date: 20060218
  Serious: Yes (Hospitalization)
  Sender: FDA-Public Use
  Company Number: 200513068EU

PATIENT
  Age: 41 Year
  Sex: Male
  Weight: 95 kg

DRUGS (6)
  1. ENOXAPARIN SODIUM [Suspect]
     Indication: DEEP VEIN THROMBOSIS
     Route: 058
     Dates: start: 20050713, end: 20050715
  2. ENOXAPARIN SODIUM [Suspect]
     Indication: PULMONARY EMBOLISM
     Route: 058
     Dates: start: 20050713, end: 20050715
  3. DICLOFENAC [Concomitant]
     Indication: PAIN
     Route: 048
     Dates: start: 20050601, end: 20050701
  4. DOSULEPIN [Concomitant]
     Indication: PAIN
     Route: 048
     Dates: start: 20050601
  5. TRAMADOL [Concomitant]
     Indication: PAIN
     Dosage: DOSE: 50-100 MG
     Route: 048
     Dates: start: 20050601, end: 20050701
  6. RANITIDINE [Concomitant]
     Indication: GASTROOESOPHAGEAL REFLUX DISEASE
     Route: 048

REACTIONS (3)
  - HEADACHE [None]
  - RASH [None]
  - VOMITING [None]
